FAERS Safety Report 12892788 (Version 1)
Quarter: 2016Q4

REPORT INFORMATION
  Report Type: Spontaneous
  Country: US (occurrence: US)
  Receive Date: 20161028
  Receipt Date: 20161028
  Transmission Date: 20170207
  Serious: No
  Sender: FDA-Public Use
  Company Number: US-BRACCO-013782

PATIENT
  Sex: Female

DRUGS (1)
  1. READI-CAT [Suspect]
     Active Substance: BARIUM SULFATE
     Indication: DIAGNOSTIC PROCEDURE
     Dosage: 1 BOTTLE
     Route: 048

REACTIONS (2)
  - Product contamination physical [Unknown]
  - No adverse event [Unknown]
